FAERS Safety Report 11679660 (Version 2)
Quarter: 2015Q4

REPORT INFORMATION
  Report Type: Spontaneous
  Country: US (occurrence: US)
  Receive Date: 20151027
  Receipt Date: 20151104
  Transmission Date: 20160304
  Serious: No
  Sender: FDA-Public Use
  Company Number: US-ELI_LILLY_AND_COMPANY-US201005005264

PATIENT
  Age: 74 Year
  Sex: Female

DRUGS (3)
  1. FORTEO [Suspect]
     Active Substance: TERIPARATIDE
     Dosage: 20 UG, DAILY (1/D)
     Dates: end: 201012
  2. CALCIUM [Concomitant]
     Active Substance: CALCIUM
  3. FORTEO [Suspect]
     Active Substance: TERIPARATIDE
     Indication: OSTEOPOROSIS
     Dosage: 20 UG, DAILY (1/D)
     Dates: start: 20100101

REACTIONS (12)
  - Abdominal pain upper [Unknown]
  - Calculus bladder [Unknown]
  - Crystal urine [Unknown]
  - Drug dose omission [Unknown]
  - Hypercalciuria [Unknown]
  - Nephrolithiasis [Unknown]
  - Cystitis [Unknown]
  - Feeling abnormal [Unknown]
  - Back pain [Unknown]
  - Depressed mood [Unknown]
  - Drug ineffective [Unknown]
  - Blood calcium increased [Unknown]

NARRATIVE: CASE EVENT DATE: 20100501
